FAERS Safety Report 5628747-X (Version None)
Quarter: 2008Q1

REPORT INFORMATION
  Report Type: 
  Country: None (occurrence: None)
  Receive Date: 20080215
  Receipt Date: 20080206
  Transmission Date: 20080703
  Serious: Yes (Other)
  Sender: FDA-Public Use
  Company Number: US-PFIZER INC-2008012653

PATIENT
  Sex: Male

DRUGS (1)
  1. CHANTIX [Suspect]
     Indication: SMOKING CESSATION THERAPY
     Dates: start: 20070927, end: 20071201

REACTIONS (7)
  - AGGRESSION [None]
  - CONSTIPATION [None]
  - DELUSION [None]
  - DEPRESSION [None]
  - HALLUCINATION [None]
  - MEMORY IMPAIRMENT [None]
  - STOMACH DISCOMFORT [None]
